FAERS Safety Report 21985378 (Version 2)
Quarter: 2023Q1

REPORT INFORMATION
  Report Type: Spontaneous
  Country: US (occurrence: US)
  Receive Date: 20230213
  Receipt Date: 20230217
  Transmission Date: 20230418
  Serious: Yes (Other)
  Sender: FDA-Public Use
  Company Number: US-ORGANON-O2302USA001042

PATIENT
  Sex: Female

DRUGS (2)
  1. ASMANEX [Suspect]
     Active Substance: MOMETASONE FUROATE
     Indication: Dyspnoea
     Dosage: 2 PUFFS ONCE A DAY
     Dates: start: 20230107
  2. PREDNISONE [Suspect]
     Active Substance: PREDNISONE
     Indication: Lung disorder
     Dosage: UNK

REACTIONS (7)
  - Pneumonia [Unknown]
  - Dyspnoea [Unknown]
  - Device malfunction [Unknown]
  - Poor quality device used [Unknown]
  - Wrong technique in device usage process [Unknown]
  - Incorrect dose administered [Unknown]
  - Circumstance or information capable of leading to medication error [Unknown]

NARRATIVE: CASE EVENT DATE: 20230101
